FAERS Safety Report 9421742 (Version 1)
Quarter: 2013Q3

REPORT INFORMATION
  Report Type: Spontaneous
  Country: US (occurrence: US)
  Receive Date: 20130712
  Receipt Date: 20130712
  Transmission Date: 20140515
  Serious: Yes (Hospitalization)
  Sender: FDA-Public Use
  Company Number: US-BAYER-2013-085143

PATIENT
  Age: 38 Year
  Sex: Female

DRUGS (4)
  1. YAZ [Suspect]
  2. TOPROL XL [Concomitant]
  3. PREVACID [Concomitant]
  4. DARVOCET [Concomitant]

REACTIONS (1)
  - Pulmonary embolism [Recovered/Resolved]
